FAERS Safety Report 14837284 (Version 1)
Quarter: 2018Q2

REPORT INFORMATION
  Report Type: Other
  Country: GB (occurrence: GB)
  Receive Date: 20180502
  Receipt Date: 20180502
  Transmission Date: 20180711
  Serious: Yes (Disabling)
  Sender: FDA-Public Use
  Company Number: GB-GLENMARK PHARMACEUTICALS-2018GMK034797

PATIENT

DRUGS (2)
  1. RIZATRIPTAN. [Concomitant]
     Active Substance: RIZATRIPTAN
     Indication: MIGRAINE
     Dosage: 2 DF, REPEAT IN 2 HOURS IF NECESSARY. ; AS NECESSARY
     Route: 065
     Dates: start: 20120601
  2. TOPIRAMATE. [Suspect]
     Active Substance: TOPIRAMATE
     Indication: PRODUCT USED FOR UNKNOWN INDICATION
     Dosage: UNK
     Route: 065
     Dates: start: 20160616

REACTIONS (6)
  - Dry mouth [Unknown]
  - Poor quality sleep [Recovering/Resolving]
  - Balance disorder [Recovering/Resolving]
  - Oropharyngeal pain [Unknown]
  - Vision blurred [Recovering/Resolving]
  - Paraesthesia [Recovering/Resolving]

NARRATIVE: CASE EVENT DATE: 20180410
